FAERS Safety Report 25052608 (Version 1)
Quarter: 2025Q1

REPORT INFORMATION
  Report Type: Spontaneous
  Country: US (occurrence: US)
  Receive Date: 20250307
  Receipt Date: 20250307
  Transmission Date: 20250409
  Serious: No
  Sender: COREPHARMA LLC
  Company Number: US-CorePharma LLC-2172466

PATIENT
  Age: 55 Year
  Sex: Male

DRUGS (4)
  1. LISINOPRIL [Suspect]
     Active Substance: LISINOPRIL
     Indication: Cardiomyopathy
  2. FUROSEMIDE [Suspect]
     Active Substance: FUROSEMIDE
  3. SPIRONOLACTONE [Suspect]
     Active Substance: SPIRONOLACTONE
  4. CARVEDILOL [Suspect]
     Active Substance: CARVEDILOL

REACTIONS (4)
  - Fatigue [Unknown]
  - Product use in unapproved indication [Unknown]
  - Hypotension [Unknown]
  - Asthenia [Unknown]
